FAERS Safety Report 17052500 (Version 1)
Quarter: 2019Q4

REPORT INFORMATION
  Report Type: Spontaneous
  Country: US (occurrence: US)
  Receive Date: 20191120
  Receipt Date: 20191120
  Transmission Date: 20200122
  Serious: Yes (Other)
  Sender: FDA-Public Use
  Company Number: US-PFIZER INC-2019499336

PATIENT
  Age: 43 Year
  Sex: Male
  Weight: 54.88 kg

DRUGS (1)
  1. DILANTIN [Suspect]
     Active Substance: PHENYTOIN
     Indication: SEIZURE
     Dosage: 300 MG, 1X/DAY (EACH NIGHT (3, 100 MG CAPSULES) )
     Route: 048

REACTIONS (1)
  - Myocardial infarction [Unknown]
